FAERS Safety Report 6754355-3 (Version None)
Quarter: 2010Q2

REPORT INFORMATION
  Report Type: 
  Country: None (occurrence: None)
  Receive Date: 20100603
  Receipt Date: 20100529
  Transmission Date: 20101027
  Serious: Yes (Death)
  Sender: FDA-Public Use
  Company Number: ES-CELGENEUS-144-50794-10052606

PATIENT
  Sex: Male

DRUGS (7)
  1. VIDAZA [Suspect]
     Indication: REFRACTORY CYTOPENIA WITH MULTILINEAGE DYSPLASIA
     Route: 050
     Dates: start: 20090514
  2. VIDAZA [Suspect]
     Indication: SIDEROBLASTIC ANAEMIA
  3. VIDAZA [Suspect]
  4. NEO RECORMON [Concomitant]
     Indication: DRUG USE FOR UNKNOWN INDICATION
     Route: 065
     Dates: start: 20090222, end: 20090715
  5. NEUPOGEN [Concomitant]
     Route: 065
  6. RED BLOOD CELLS [Concomitant]
     Route: 065
  7. PLATELETS [Concomitant]
     Route: 065

REACTIONS (2)
  - ACUTE MYELOID LEUKAEMIA [None]
  - MYELODYSPLASTIC SYNDROME TRANSFORMATION [None]
